FAERS Safety Report 16561595 (Version 2)
Quarter: 2019Q3

REPORT INFORMATION
  Report Type: Spontaneous
  Country: US (occurrence: US)
  Receive Date: 20190711
  Receipt Date: 20190823
  Transmission Date: 20191004
  Serious: No
  Sender: FDA-Public Use
  Company Number: US-JNJFOC-20190715233

PATIENT
  Age: 61 Year
  Sex: Male
  Weight: 83.08 kg

DRUGS (1)
  1. ZYTIGA [Suspect]
     Active Substance: ABIRATERONE ACETATE
     Indication: PROSTATE CANCER STAGE IV
     Route: 048

REACTIONS (2)
  - Product dose omission [Unknown]
  - Product label issue [Unknown]

NARRATIVE: CASE EVENT DATE: 20190704
